FAERS Safety Report 8427065-4 (Version None)
Quarter: 2012Q2

REPORT INFORMATION
  Report Type: 
  Country: None (occurrence: None)
  Receive Date: 20120611
  Receipt Date: 20120601
  Transmission Date: 20120825
  Serious: Yes (Other)
  Sender: FDA-Public Use
  Company Number: CA-JNJFOC-20120601698

PATIENT
  Sex: Female
  Weight: 144 kg

DRUGS (4)
  1. STELARA [Suspect]
     Indication: PSORIASIS
     Dosage: 90 MG, 0-4 AND EVERY 12 WEEKS
     Route: 058
     Dates: start: 20120404
  2. VENTOLIN [Concomitant]
  3. SEREVENT [Concomitant]
  4. FLOVENT [Concomitant]

REACTIONS (1)
  - CELLULITIS [None]
